FAERS Safety Report 4825942-4 (Version None)
Quarter: 2005Q4

REPORT INFORMATION
  Report Type: 
  Country: None (occurrence: None)
  Receive Date: 20051111
  Receipt Date: 20051028
  Transmission Date: 20060501
  Serious: Yes (Hospitalization)
  Sender: FDA-Public Use
  Company Number: GBWYE097228OCT05

PATIENT
  Sex: Male

DRUGS (2)
  1. ENBREL [Suspect]
     Indication: DRUG USE FOR UNKNOWN INDICATION
     Route: 058
     Dates: start: 20051001, end: 20051001
  2. METHOTREXATE [Concomitant]
     Dates: start: 20051001, end: 20051001

REACTIONS (1)
  - WHITE BLOOD CELL COUNT DECREASED [None]
